FAERS Safety Report 18506255 (Version 3)
Quarter: 2022Q2

REPORT INFORMATION
  Report Type: Report from Study
  Country: GB (occurrence: GB)
  Receive Date: 20201116
  Receipt Date: 20220428
  Transmission Date: 20220721
  Serious: Yes (Hospitalization, Other)
  Sender: FDA-Public Use
  Company Number: GB-TAKEDA-GB202017137

PATIENT
  Age: 31 Year
  Sex: Male

DRUGS (5)
  1. HUMAN C1-ESTERASE INHIBITOR [Suspect]
     Active Substance: HUMAN C1-ESTERASE INHIBITOR
     Indication: Hereditary angioedema
     Dosage: 2000 INTERNATIONAL UNIT, 2/WEEK
     Route: 042
     Dates: start: 20160428
  2. HUMAN C1-ESTERASE INHIBITOR [Suspect]
     Active Substance: HUMAN C1-ESTERASE INHIBITOR
     Indication: Hereditary angioedema
     Dosage: 2000 INTERNATIONAL UNIT, 2/WEEK
     Route: 042
     Dates: start: 20160428
  3. HUMAN C1-ESTERASE INHIBITOR [Suspect]
     Active Substance: HUMAN C1-ESTERASE INHIBITOR
     Indication: Hereditary angioedema
     Dosage: 2000 INTERNATIONAL UNIT, 2/WEEK
     Route: 042
     Dates: start: 20160428
  4. TAKHZYRO [Suspect]
     Active Substance: LANADELUMAB-FLYO
     Indication: Hereditary angioedema
     Dosage: 300 MILLIGRAM, Q2WEEKS
     Route: 058
  5. TAKHZYRO [Suspect]
     Active Substance: LANADELUMAB-FLYO
     Dosage: 300 MILLIGRAM, Q4WEEKS
     Route: 058

REACTIONS (9)
  - Syncope [Unknown]
  - Animal bite [Unknown]
  - Irritability [Unknown]
  - Hereditary angioedema [Unknown]
  - Limb discomfort [Unknown]
  - Tooth disorder [Unknown]
  - Peripheral swelling [Unknown]
  - Stress [Unknown]
  - Product availability issue [Unknown]
